FAERS Safety Report 4579202-X (Version None)
Quarter: 2005Q1

REPORT INFORMATION
  Report Type: 
  Country: None (occurrence: None)
  Receive Date: 20050209
  Receipt Date: 20050209
  Transmission Date: 20050727
  Serious: Yes (Disabling)
  Sender: FDA-Public Use
  Company Number: None

PATIENT

DRUGS (1)
  1. LEVAQUIN [Suspect]
     Indication: BRONCHITIS
     Dosage: 1   DAILY   ORAL
     Route: 048
     Dates: start: 20050125, end: 20050128

REACTIONS (5)
  - ABASIA [None]
  - NAUSEA [None]
  - RASH [None]
  - SWELLING [None]
  - TENDON DISORDER [None]
